FAERS Safety Report 9009543 (Version 1)
Quarter: 2013Q1

REPORT INFORMATION
  Report Type: Spontaneous
  Country: PR (occurrence: PR)
  Receive Date: 20130110
  Receipt Date: 20130110
  Transmission Date: 20140127
  Serious: Yes (Hospitalization)
  Sender: FDA-Public Use
  Company Number: PR-ABBOTT-13P-131-1032950-00

PATIENT
  Sex: Female
  Weight: 113.5 kg

DRUGS (5)
  1. HUMIRA [Suspect]
     Indication: PSORIASIS
     Route: 058
     Dates: start: 201207, end: 201212
  2. UNKNOWN MEDICATION [Concomitant]
     Indication: ANXIETY
     Route: 048
  3. UNKNOWN MEDICATION [Concomitant]
     Indication: DEPRESSION
     Route: 048
  4. UNKNOWN MEDICATION [Concomitant]
     Indication: SLEEP DISORDER THERAPY
     Route: 048
  5. UNKNOWN MEDICATION [Concomitant]
     Indication: HYPERTENSION
     Route: 048

REACTIONS (2)
  - Arthritis [Recovered/Resolved]
  - Drug ineffective [Recovered/Resolved]
